FAERS Safety Report 4861092-9 (Version None)
Quarter: 2005Q4

REPORT INFORMATION
  Report Type: 
  Country: None (occurrence: None)
  Receive Date: 20051220
  Receipt Date: 20051213
  Transmission Date: 20060501
  Serious: Yes (Death)
  Sender: FDA-Public Use
  Company Number: GB-GLAXOSMITHKLINE-B0403571A

PATIENT
  Age: 76 Year
  Sex: Female

DRUGS (1)
  1. CHLORAMBUCIL [Suspect]
     Route: 065

REACTIONS (3)
  - MYELODYSPLASTIC SYNDROME [None]
  - NEUTROPENIC SEPSIS [None]
  - PNEUMONIA ASPIRATION [None]
